FAERS Safety Report 4655233-6 (Version None)
Quarter: 2005Q2

REPORT INFORMATION
  Report Type: 
  Country: None (occurrence: None)
  Receive Date: 20050506
  Receipt Date: 20050425
  Transmission Date: 20051028
  Serious: Yes (Hospitalization)
  Sender: FDA-Public Use
  Company Number: NL-GLAXOSMITHKLINE-B0379508A

PATIENT
  Age: 56 Year
  Sex: Male

DRUGS (4)
  1. VALACYCLOVIR HCL [Suspect]
     Indication: HERPES ZOSTER
     Dosage: 500MG THREE TIMES PER DAY
     Dates: start: 20050117
  2. METOPROLOL [Concomitant]
     Dosage: 50MG PER DAY
     Dates: start: 20020513
  3. LIPITOR [Concomitant]
     Dosage: 40MG PER DAY
     Dates: start: 20020513
  4. ACETYL SALICYLIC ACID USP BAT [Concomitant]
     Dosage: 80MG PER DAY
     Dates: start: 20030321

REACTIONS (6)
  - ANAPHYLACTIC REACTION [None]
  - BLOOD PRESSURE DECREASED [None]
  - DYSPNOEA [None]
  - HYPERHIDROSIS [None]
  - PALPITATIONS [None]
  - TREMOR [None]
